FAERS Safety Report 6614411-7 (Version None)
Quarter: 2010Q1

REPORT INFORMATION
  Report Type: 
  Country: None (occurrence: None)
  Receive Date: 20100303
  Receipt Date: 20100303
  Transmission Date: 20100710
  Serious: Yes (Life-Threatening)
  Sender: FDA-Public Use
  Company Number: None

PATIENT
  Age: 73 Year
  Sex: Male
  Weight: 81.1939 kg

DRUGS (1)
  1. BUPROPION HCL [Suspect]

REACTIONS (1)
  - ANGIOEDEMA [None]
